FAERS Safety Report 4417579-6 (Version None)
Quarter: 2004Q3

REPORT INFORMATION
  Report Type: 
  Country: None (occurrence: None)
  Receive Date: 20040803
  Receipt Date: 20040706
  Transmission Date: 20050211
  Serious: Yes (Life-Threatening)
  Sender: FDA-Public Use
  Company Number: 805#1#2004-00021

PATIENT
  Age: 1 Day
  Sex: Male

DRUGS (2)
  1. ALPROSTADIL [Suspect]
     Indication: HEART DISEASE CONGENITAL
     Dosage: 1.42 MCG
     Route: 041
     Dates: start: 20040105, end: 20040205
  2. ALPROSTADIL [Suspect]
     Indication: PATENT DUCTUS ARTERIOSUS
     Dosage: 1.42 MCG
     Route: 041
     Dates: start: 20040105, end: 20040205

REACTIONS (2)
  - APNOEIC ATTACK [None]
  - HYPOVENTILATION [None]
